FAERS Safety Report 23575924 (Version 1)
Quarter: 2024Q1

REPORT INFORMATION
  Report Type: Spontaneous
  Country: CN (occurrence: CN)
  Receive Date: 20240228
  Receipt Date: 20240228
  Transmission Date: 20240410
  Serious: Yes (Other)
  Sender: FDA-Public Use
  Company Number: CN-PFIZER INC-PV202400026147

PATIENT
  Age: 16 Year
  Sex: Female
  Weight: 56 kg

DRUGS (5)
  1. AMPICILLIN SODIUM\SULBACTAM SODIUM [Suspect]
     Active Substance: AMPICILLIN SODIUM\SULBACTAM SODIUM
     Indication: Pneumonia
     Dosage: 3 G, 2X/DAY
     Route: 041
     Dates: start: 20240209, end: 20240216
  2. DEXAMETHASONE SODIUM PHOSPHATE [Suspect]
     Active Substance: DEXAMETHASONE PHOSPHATE\DEXAMETHASONE SODIUM PHOSPHATE
     Indication: Pneumonia
     Dosage: 5 MG, 1X/DAY
     Route: 041
     Dates: start: 20240211, end: 20240213
  3. HERBALS [Suspect]
     Active Substance: HERBALS
     Indication: Pneumonia
     Dosage: 40 MG, 1X/DAY
     Route: 041
     Dates: start: 20240209, end: 20240215
  4. AMBROXOL HYDROCHLORIDE [Suspect]
     Active Substance: AMBROXOL HYDROCHLORIDE
     Indication: Pneumonia
     Dosage: 30 MG, 1X/DAY
     Route: 041
     Dates: start: 20240209, end: 20240216
  5. MINOCYCLINE HYDROCHLORIDE [Suspect]
     Active Substance: MINOCYCLINE HYDROCHLORIDE
     Indication: Pneumonia
     Dosage: 200 MG, 2X/DAY
     Route: 048
     Dates: start: 20240209, end: 20240216

REACTIONS (3)
  - Rash pruritic [Recovering/Resolving]
  - Rash papular [Recovering/Resolving]
  - Rash erythematous [Recovering/Resolving]

NARRATIVE: CASE EVENT DATE: 20240216
